FAERS Safety Report 19275652 (Version 3)
Quarter: 2022Q4

REPORT INFORMATION
  Report Type: Spontaneous
  Country: US (occurrence: None)
  Receive Date: 20210519
  Receipt Date: 20221004
  Transmission Date: 20230113
  Serious: Yes (Hospitalization, Other)
  Sender: FDA-Public Use
  Company Number: 2021A002938

PATIENT
  Age: 26516 Day
  Sex: Female
  Weight: 57.6 kg

DRUGS (55)
  1. ESOMEPRAZOLE [Suspect]
     Active Substance: ESOMEPRAZOLE
     Indication: Gastrooesophageal reflux disease
     Dosage: GENERIC
     Route: 065
     Dates: start: 2019
  2. ESOMEPRAZOLE [Suspect]
     Active Substance: ESOMEPRAZOLE
     Indication: Gastrooesophageal reflux disease
     Dosage: GENERIC
     Route: 065
     Dates: start: 20201007
  3. PREVACID [Suspect]
     Active Substance: LANSOPRAZOLE
     Indication: Gastrooesophageal reflux disease
     Route: 065
     Dates: start: 1995, end: 2016
  4. PREVACID [Suspect]
     Active Substance: LANSOPRAZOLE
     Indication: Gastrooesophageal reflux disease
     Dosage: GENERIC
     Route: 065
     Dates: start: 2009, end: 2019
  5. PREVACID [Suspect]
     Active Substance: LANSOPRAZOLE
     Indication: Gastrooesophageal reflux disease
     Route: 065
     Dates: start: 20091123
  6. ZITHROMAX [Concomitant]
     Active Substance: AZITHROMYCIN DIHYDRATE
     Indication: Bronchitis
     Dosage: AS NEEDED
  7. LEVAQUIN [Concomitant]
     Active Substance: LEVOFLOXACIN
     Indication: Bronchitis
     Dosage: AS NEEDED
  8. LASIX [Concomitant]
     Active Substance: FUROSEMIDE
     Indication: Fluid retention
     Dates: start: 2010
  9. LIPITOR [Concomitant]
     Active Substance: ATORVASTATIN CALCIUM
     Indication: Blood cholesterol abnormal
     Dates: start: 2017
  10. PROZAC [Concomitant]
     Active Substance: FLUOXETINE HYDROCHLORIDE
     Indication: Depression
     Dates: start: 2010
  11. RENVELLA [Concomitant]
     Indication: Blood phosphorus decreased
     Dates: start: 2015
  12. SENSIPAR [Concomitant]
     Active Substance: CINACALCET HYDROCHLORIDE
     Indication: Blood calcium decreased
     Dates: start: 2015
  13. ASPIRIN [Concomitant]
     Active Substance: ASPIRIN
     Indication: Coronary artery disease
     Dates: start: 2010
  14. CYANOCOBALAMIN\FOLIC ACID\PYRIDOXINE HYDROCHLORIDE [Concomitant]
     Active Substance: CYANOCOBALAMIN\FOLIC ACID\PYRIDOXINE HYDROCHLORIDE
     Indication: Hypovitaminosis
     Dates: start: 2015
  15. RESTORIL [Concomitant]
     Active Substance: TEMAZEPAM
  16. CYMBALTA [Concomitant]
     Active Substance: DULOXETINE HYDROCHLORIDE
  17. METFORMIN [Concomitant]
     Active Substance: METFORMIN HYDROCHLORIDE
  18. VALTREX [Concomitant]
     Active Substance: VALACYCLOVIR HYDROCHLORIDE
  19. SUMATRIPTAN [Concomitant]
     Active Substance: SUMATRIPTAN
  20. ACETAMINOPHEN\OXYCODONE HYDROCHLORIDE [Concomitant]
     Active Substance: ACETAMINOPHEN\OXYCODONE HYDROCHLORIDE
  21. LEVETIRACETAM [Concomitant]
     Active Substance: LEVETIRACETAM
  22. FLUOXETINE [Concomitant]
     Active Substance: FLUOXETINE HYDROCHLORIDE
  23. AMOXICILLIN [Concomitant]
     Active Substance: AMOXICILLIN
  24. IMITREX [Concomitant]
     Active Substance: SUMATRIPTAN SUCCINATE
  25. SPIRIVA [Concomitant]
     Active Substance: TIOTROPIUM BROMIDE MONOHYDRATE
  26. PROCHLORPERAZINE [Concomitant]
     Active Substance: PROCHLORPERAZINE
  27. SIMVASTATIN [Concomitant]
     Active Substance: SIMVASTATIN
  28. ELLIQUIS [Concomitant]
  29. DIOVAN [Concomitant]
     Active Substance: VALSARTAN
  30. CEFPROZIL [Concomitant]
     Active Substance: CEFPROZIL
  31. METHYLPREDNISOLONE [Concomitant]
     Active Substance: METHYLPREDNISOLONE
  32. ESTRACE [Concomitant]
     Active Substance: ESTRADIOL
  33. MELOXICAM [Concomitant]
     Active Substance: MELOXICAM
  34. DEXAMETHASONE [Concomitant]
     Active Substance: DEXAMETHASONE
  35. METHERGINE [Concomitant]
     Active Substance: METHYLERGONOVINE MALEATE
  36. BYDUREON [Concomitant]
     Active Substance: EXENATIDE
  37. METOPROLOL [Concomitant]
     Active Substance: METOPROLOL
  38. LOSARTAN [Concomitant]
     Active Substance: LOSARTAN
  39. TRIAMETRENE-HCTZ [Concomitant]
  40. LIOTHYRONINE [Concomitant]
     Active Substance: LIOTHYRONINE
  41. CHLORHEXIDINE [Concomitant]
     Active Substance: CHLORHEXIDINE
  42. PREDNISONE [Concomitant]
     Active Substance: PREDNISONE
  43. AMLODIPINE [Concomitant]
     Active Substance: AMLODIPINE BESYLATE
  44. PANTOPRAZOLE [Concomitant]
     Active Substance: PANTOPRAZOLE
  45. CLINDAMYCIN [Concomitant]
     Active Substance: CLINDAMYCIN
  46. KETOROLAC [Concomitant]
     Active Substance: KETOROLAC TROMETHAMINE
  47. HYDROXYZINE [Concomitant]
     Active Substance: HYDROXYZINE HYDROCHLORIDE
  48. NURTEC ODT [Concomitant]
     Active Substance: RIMEGEPANT SULFATE
  49. FOLBEE PLUS [Concomitant]
  50. ONDANSETRON [Concomitant]
     Active Substance: ONDANSETRON
  51. BUDESONIDE [Concomitant]
     Active Substance: BUDESONIDE
  52. PULMICORT TURBUHALER [Concomitant]
     Active Substance: BUDESONIDE
  53. VITAMIN D2 [Concomitant]
     Active Substance: ERGOCALCIFEROL
  54. BROVANA [Concomitant]
     Active Substance: ARFORMOTEROL TARTRATE
  55. CINACALCET [Concomitant]
     Active Substance: CINACALCET

REACTIONS (6)
  - Acute kidney injury [Not Recovered/Not Resolved]
  - Chronic kidney disease [Not Recovered/Not Resolved]
  - End stage renal disease [Not Recovered/Not Resolved]
  - Renal failure [Unknown]
  - Nephrogenic anaemia [Unknown]
  - Hyperparathyroidism secondary [Unknown]

NARRATIVE: CASE EVENT DATE: 20201005
